FAERS Safety Report 19386928 (Version 2)
Quarter: 2021Q3

REPORT INFORMATION
  Report Type: Spontaneous
  Country: US (occurrence: US)
  Receive Date: 20210607
  Receipt Date: 20210903
  Transmission Date: 20211014
  Serious: Yes (Other)
  Sender: FDA-Public Use
  Company Number: US-BAYER-2021-151799

PATIENT
  Age: 16 Year
  Sex: Female

DRUGS (1)
  1. KYLEENA [Suspect]
     Active Substance: LEVONORGESTREL
     Indication: CONTRACEPTION
     Dosage: 17.5 ?G, CONT
     Route: 015
     Dates: start: 20200923, end: 20210601

REACTIONS (3)
  - Device dislocation [Recovered/Resolved]
  - Urinary tract infection [Recovering/Resolving]
  - Pelvic pain [Recovered/Resolved]

NARRATIVE: CASE EVENT DATE: 2021
